FAERS Safety Report 9093535 (Version 3)
Quarter: 2013Q2

REPORT INFORMATION
  Report Type: Report from Study
  Country: US (occurrence: US)
  Receive Date: 20130201
  Receipt Date: 20130514
  Transmission Date: 20140414
  Serious: Yes (Death)
  Sender: FDA-Public Use
  Company Number: US-PFIZER INC-2013024579

PATIENT
  Age: 70 Year
  Sex: Female
  Weight: 99.8 kg

DRUGS (4)
  1. CELECOXIB [Suspect]
     Indication: OSTEOARTHRITIS
     Dosage: 100 MG, 2X/DAY
     Route: 048
     Dates: start: 20121120, end: 20121214
  2. CELECOXIB [Suspect]
     Indication: RHEUMATOID ARTHRITIS
  3. CELEBREX [Suspect]
     Indication: OSTEOARTHRITIS
     Dosage: 200 MG, DAILY
     Route: 048
     Dates: start: 20121216
  4. NEXIUM [Concomitant]
     Indication: PROPHYLAXIS
     Dosage: 20 MG, 1X/DAY
     Route: 048
     Dates: start: 20121120, end: 20121217

REACTIONS (1)
  - Cardiac arrest [Fatal]
